FAERS Safety Report 5694922-1 (Version None)
Quarter: 2008Q2

REPORT INFORMATION
  Report Type: 
  Country: None (occurrence: None)
  Receive Date: 20080404
  Receipt Date: 20080325
  Transmission Date: 20081010
  Serious: Yes (Congenital Anomaly, Other)
  Sender: FDA-Public Use
  Company Number: FR-BRISTOL-MYERS SQUIBB COMPANY-14135727

PATIENT
  Age: 37 Year
  Sex: Female

DRUGS (2)
  1. GLUCOPHAGE [Suspect]
     Indication: TYPE 2 DIABETES MELLITUS
     Route: 048
     Dates: end: 20071110
  2. ACOMPLIA [Suspect]
     Indication: TYPE 2 DIABETES MELLITUS
     Dosage: STRENGTH = 20MG TABLETS
     Route: 048
     Dates: end: 20071110

REACTIONS (5)
  - ABORTION INDUCED [None]
  - AMNIOTIC FLUID VOLUME DECREASED [None]
  - CAUDAL REGRESSION SYNDROME [None]
  - FOETAL GROWTH RETARDATION [None]
  - PREGNANCY [None]
